FAERS Safety Report 7917360-7 (Version None)
Quarter: 2011Q4

REPORT INFORMATION
  Report Type: 
  Country: None (occurrence: None)
  Receive Date: 20111116
  Receipt Date: 20111110
  Transmission Date: 20120403
  Serious: Yes (Death)
  Sender: FDA-Public Use
  Company Number: PHHY2011AT097647

PATIENT
  Age: 57 Year
  Sex: Male
  Weight: 75 kg

DRUGS (2)
  1. CLOZAPINE [Suspect]
     Dosage: 100 MG, 2 DOSAGE FORM 3 TIMES A DAY
     Dates: start: 20110101
  2. NOVALGIN [Suspect]

REACTIONS (4)
  - SEPSIS [None]
  - MULTI-ORGAN FAILURE [None]
  - NEUTROPENIA [None]
  - AGRANULOCYTOSIS [None]
